FAERS Safety Report 6407162-5 (Version None)
Quarter: 2009Q4

REPORT INFORMATION
  Report Type: 
  Country: None (occurrence: None)
  Receive Date: 20091020
  Receipt Date: 20091009
  Transmission Date: 20100525
  Serious: Yes (Hospitalization, Disabling)
  Sender: FDA-Public Use
  Company Number: US-BAXTER-2009BH015536

PATIENT
  Age: 14 Month
  Sex: Male
  Weight: 11 kg

DRUGS (4)
  1. ADVATE [Suspect]
     Indication: IMMUNOMODULATORY THERAPY
     Route: 042
     Dates: start: 20040714, end: 20040714
  2. ADVATE [Suspect]
     Indication: FACTOR VIII DEFICIENCY
     Route: 042
     Dates: start: 20040714, end: 20040714
  3. ADVATE [Suspect]
     Route: 042
     Dates: start: 20040410, end: 20040711
  4. ADVATE [Suspect]
     Route: 042
     Dates: start: 20040410, end: 20040711

REACTIONS (2)
  - CATHETER PLACEMENT [None]
  - FACTOR VIII INHIBITION [None]
